FAERS Safety Report 7743722-7 (Version None)
Quarter: 2011Q3

REPORT INFORMATION
  Report Type: 
  Country: None (occurrence: None)
  Receive Date: 20110912
  Receipt Date: 20110906
  Transmission Date: 20111222
  Serious: Yes (Death)
  Sender: FDA-Public Use
  Company Number: US-ASTRAZENECA-2011SE53264

PATIENT
  Age: 35199 Day
  Sex: Female
  Weight: 45.4 kg

DRUGS (4)
  1. SEROQUEL [Suspect]
     Route: 048
     Dates: start: 20060101, end: 20110824
  2. ATENOLOL [Concomitant]
     Indication: BLOOD PRESSURE ABNORMAL
     Route: 048
  3. EROCEF [Concomitant]
     Indication: DEMENTIA
     Route: 048
     Dates: start: 20060101
  4. EROCEF [Concomitant]
     Indication: DEMENTIA ALZHEIMER'S TYPE
     Route: 048
     Dates: start: 20060101

REACTIONS (1)
  - DEATH [None]
